FAERS Safety Report 25764949 (Version 1)
Quarter: 2025Q3

REPORT INFORMATION
  Report Type: Spontaneous
  Country: BR (occurrence: BR)
  Receive Date: 20250905
  Receipt Date: 20250905
  Transmission Date: 20251021
  Serious: Yes (Hospitalization, Other)
  Sender: SANDOZ
  Company Number: BR-002147023-NVSC2024BR130661

PATIENT
  Age: 67 Year
  Sex: Male
  Weight: 98 kg

DRUGS (13)
  1. ROSUVASTATIN [Suspect]
     Active Substance: ROSUVASTATIN
     Indication: Product used for unknown indication
     Dosage: 20 MG, QD
     Route: 065
  2. SECUKINUMAB [Suspect]
     Active Substance: SECUKINUMAB
     Dosage: 300 MG, QMO
     Route: 065
  3. SECUKINUMAB [Suspect]
     Active Substance: SECUKINUMAB
     Indication: Psoriasis
     Route: 065
     Dates: start: 2023
  4. ASPIRIN [Concomitant]
     Active Substance: ASPIRIN
     Indication: Product used for unknown indication
     Dosage: 100 MG, QD
     Route: 065
  5. CIPROFIBRATE [Concomitant]
     Active Substance: CIPROFIBRATE
     Indication: Product used for unknown indication
     Dosage: 100 MG, QD
     Route: 065
  6. CLOPIDOGREL [Concomitant]
     Active Substance: CLOPIDOGREL BISULFATE
     Indication: Product used for unknown indication
     Dosage: 75 MG, QD
     Route: 065
  7. CHLORTHALIDONE [Concomitant]
     Active Substance: CHLORTHALIDONE
     Indication: Product used for unknown indication
     Dosage: 25 MG, QD
     Route: 065
  8. ENALAPRIL [Concomitant]
     Active Substance: ENALAPRIL
     Indication: Product used for unknown indication
     Dosage: UNK, (20 M) BID
     Route: 065
  9. METFORMIN [Concomitant]
     Active Substance: METFORMIN HYDROCHLORIDE
     Indication: Product used for unknown indication
     Dosage: 2 DOSAGE FORM, QD
     Route: 065
  10. OMEPRAZOLE [Concomitant]
     Active Substance: OMEPRAZOLE
     Indication: Product used for unknown indication
     Dosage: 20 MG, QD
     Route: 065
  11. PURAN [Concomitant]
     Active Substance: LEVOTHYROXINE SODIUM
     Indication: Product used for unknown indication
     Dosage: UNK, (50MCG) QD
     Route: 065
  12. METOPROLOL SUCCINATE [Concomitant]
     Active Substance: METOPROLOL SUCCINATE
     Indication: Product used for unknown indication
     Dosage: 50 MG, QD
     Route: 065
  13. Vitamina d2 [Concomitant]
     Indication: Product used for unknown indication
     Dosage: 1 DF, QW
     Route: 065

REACTIONS (11)
  - Influenza [Unknown]
  - Pyrexia [Recovered/Resolved]
  - Malaise [Recovered/Resolved]
  - Pneumonia [Unknown]
  - Chronic obstructive pulmonary disease [Unknown]
  - Bronchospasm [Recovering/Resolving]
  - Dyspnoea [Recovered/Resolved]
  - Cough [Recovered/Resolved]
  - Latent tuberculosis [Unknown]
  - Oral candidiasis [Unknown]
  - Asthenia [Recovering/Resolving]

NARRATIVE: CASE EVENT DATE: 20230801
